FAERS Safety Report 10609107 (Version 1)
Quarter: 2014Q4

REPORT INFORMATION
  Report Type: Spontaneous
  Country: DE (occurrence: DE)
  Receive Date: 20141126
  Receipt Date: 20141126
  Transmission Date: 20150529
  Serious: Yes (Other)
  Sender: FDA-Public Use
  Company Number: DE-AUROBINDO-AUR-APL-2014-12101

PATIENT
  Age: 65 Year
  Sex: Male

DRUGS (1)
  1. SERTRALINE [Suspect]
     Active Substance: SERTRALINE HYDROCHLORIDE
     Indication: PRODUCT USED FOR UNKNOWN INDICATION
     Dosage: 50 MG, ONCE A DAY
     Route: 048
     Dates: start: 20140218, end: 20140220

REACTIONS (2)
  - Urinary retention [Recovered/Resolved]
  - Urinary hesitation [Recovered/Resolved]

NARRATIVE: CASE EVENT DATE: 20140219
